FAERS Safety Report 8987716 (Version 1)
Quarter: 2012Q4

REPORT INFORMATION
  Report Type: 
  Country: US (occurrence: US)
  Receive Date: 20121227
  Receipt Date: 20121227
  Transmission Date: 20130627
  Serious: Yes (Other)
  Sender: FDA-Public Use
  Company Number: US-BAYER-2012-135264

PATIENT
  Age: 65 Year
  Sex: Female

DRUGS (1)
  1. ALKA-SELTZER PLUS [Suspect]
     Indication: COLD SYMPTOMS
     Dosage: 2 DF, ONCE
     Route: 048
     Dates: start: 20121219, end: 20121219

REACTIONS (2)
  - Choking [Recovered/Resolved]
  - Foreign body [Recovered/Resolved]
